FAERS Safety Report 14072086 (Version 2)
Quarter: 2017Q4

REPORT INFORMATION
  Report Type: Spontaneous
  Country: CA (occurrence: CA)
  Receive Date: 20171011
  Receipt Date: 20171025
  Transmission Date: 20180321
  Serious: Yes (Other)
  Sender: FDA-Public Use
  Company Number: CA-ROCHE-2004146

PATIENT
  Age: 16 Month
  Sex: Female
  Weight: 12.4 kg

DRUGS (7)
  1. RITUXAN [Suspect]
     Active Substance: RITUXIMAB
     Indication: EVANS SYNDROME
     Route: 042
     Dates: start: 201701, end: 201702
  2. MYCOPHENOLATE MOFETIL. [Concomitant]
     Active Substance: MYCOPHENOLATE MOFETIL
     Route: 048
     Dates: start: 20170626
  3. HYDROXYCHLOROQUINE [Concomitant]
     Active Substance: HYDROXYCHLOROQUINE
     Route: 048
     Dates: start: 20170626
  4. METHYLPRED [Concomitant]
     Active Substance: METHYLPREDNISOLONE
     Indication: EVANS SYNDROME
     Route: 042
     Dates: start: 20170618
  5. RITUXAN [Suspect]
     Active Substance: RITUXIMAB
     Dosage: 4 INFUSIONS IN TOTAL
     Route: 042
     Dates: start: 20170622, end: 20170720
  6. SABRIL [Concomitant]
     Active Substance: VIGABATRIN
     Indication: INFANTILE SPASMS
     Route: 048
     Dates: start: 201612
  7. PREDNISONE. [Concomitant]
     Active Substance: PREDNISONE
     Route: 065

REACTIONS (6)
  - Infusion related reaction [Recovered/Resolved]
  - Evans syndrome [Unknown]
  - Thrombocytopenia [Unknown]
  - Drug specific antibody present [Unknown]
  - Drug ineffective [Unknown]
  - Proteinuria [Unknown]

NARRATIVE: CASE EVENT DATE: 201706
